FAERS Safety Report 8846755 (Version 1)
Quarter: 2012Q4

REPORT INFORMATION
  Report Type: 
  Country: US (occurrence: US)
  Receive Date: 20121018
  Receipt Date: 20121018
  Transmission Date: 20130627
  Serious: Yes (Hospitalization, Other)
  Sender: FDA-Public Use
  Company Number: US-NOVOPROD-361917

PATIENT
  Age: 64 Year
  Sex: Male
  Weight: 120 kg

DRUGS (2)
  1. VICTOZA [Suspect]
     Indication: TYPE 2 DIABETES MELLITUS
     Dosage: 0.6 mg, qd
     Route: 058
     Dates: start: 20120925, end: 20120928
  2. VICTOZA [Suspect]
     Dosage: UNK
     Dates: start: 20120929, end: 20121004

REACTIONS (3)
  - Palpitations [Recovered/Resolved]
  - Palpitations [Unknown]
  - Blood magnesium decreased [Unknown]
